FAERS Safety Report 8406582-7 (Version None)
Quarter: 2012Q2

REPORT INFORMATION
  Report Type: 
  Country: None (occurrence: None)
  Receive Date: 20120529
  Receipt Date: 20080612
  Transmission Date: 20120825
  Serious: Yes (Other)
  Sender: FDA-Public Use
  Company Number: 02100-JPN-07-0312

PATIENT
  Age: 84 Year
  Sex: Female

DRUGS (6)
  1. MUCOSTA (REBAMIPIDE) [Concomitant]
  2. AMLODIPINE BESYLATE [Concomitant]
  3. CANDESARTAN CILEXETIL [Concomitant]
  4. NORVASC [Concomitant]
  5. CONIEL (BENIDIPINE HYDROCHLORIDE) [Concomitant]
  6. PLETAL [Suspect]
     Indication: LACUNAR INFARCTION
     Dosage: 100 MG, BID, ORAL
     Route: 048
     Dates: start: 20040527, end: 20070526

REACTIONS (2)
  - RENAL CANCER [None]
  - GASTRIC CANCER [None]
